FAERS Safety Report 15588092 (Version 2)
Quarter: 2018Q4

REPORT INFORMATION
  Report Type: Report from Study
  Country: None (occurrence: CA)
  Receive Date: 20181105
  Receipt Date: 20181127
  Transmission Date: 20190205
  Serious: Yes (Hospitalization)
  Sender: FDA-Public Use
  Company Number: CA-ABBVIE-18P-028-2534948-00

PATIENT
  Age: 15 Year
  Sex: Male

DRUGS (55)
  1. VENETOCLAX. [Suspect]
     Active Substance: VENETOCLAX
     Route: 048
     Dates: start: 20180505, end: 20180510
  2. CETIRIZINE TABLET [Concomitant]
     Indication: PRURITUS
     Route: 048
     Dates: start: 20180325, end: 20180325
  3. PIPERACILLIN AND TAZOBACTAM [Concomitant]
     Active Substance: PIPERACILLIN SODIUM\TAZOBACTAM SODIUM
     Indication: SEPSIS
     Route: 042
     Dates: start: 20180111, end: 20180118
  4. PIPERACILLIN AND TAZOBACTAM [Concomitant]
     Active Substance: PIPERACILLIN SODIUM\TAZOBACTAM SODIUM
     Route: 042
     Dates: start: 20180323, end: 20180417
  5. ALLOPURINOL. [Concomitant]
     Active Substance: ALLOPURINOL
     Indication: PROPHYLAXIS
     Route: 048
     Dates: start: 20171127, end: 20171202
  6. DEXTROSE 5% + NACL0.9% [Concomitant]
     Route: 042
     Dates: start: 20180104, end: 20180111
  7. CEPACOL [Concomitant]
     Active Substance: BENZOCAINE
     Indication: OROPHARYNGEAL PAIN
     Dosage: PRN
     Route: 048
     Dates: start: 20171130
  8. CASPOFUNGIN [Concomitant]
     Active Substance: CASPOFUNGIN
     Route: 042
     Dates: start: 20180216
  9. PREGABALIN CAPSULE [Concomitant]
     Indication: MYALGIA
     Route: 048
     Dates: start: 20180326, end: 20180326
  10. PREGABALIN CAPSULE [Concomitant]
     Route: 048
     Dates: start: 20180327
  11. CLOXACILIN [Concomitant]
     Indication: SEPSIS
     Route: 042
     Dates: start: 20180324, end: 20180324
  12. VENETOCLAX. [Suspect]
     Active Substance: VENETOCLAX
     Dosage: GASTROSTOMY
     Route: 050
     Dates: start: 20180104, end: 20180412
  13. VENETOCLAX. [Suspect]
     Active Substance: VENETOCLAX
     Route: 048
     Dates: start: 20180511
  14. GRANISETRON [Concomitant]
     Active Substance: GRANISETRON
     Indication: PROPHYLAXIS OF NAUSEA AND VOMITING
     Dosage: PRN
     Route: 048
     Dates: start: 20170214
  15. NYSTATIN. [Concomitant]
     Active Substance: NYSTATIN
     Indication: MUCOSITIS MANAGEMENT
     Route: 048
     Dates: start: 20170715
  16. ACETAMINOPHENE [Concomitant]
     Indication: PAIN
  17. LORAZEPAM SUBLINGUAL [Concomitant]
     Indication: ANXIETY
     Dosage: PRN
     Route: 060
     Dates: start: 20180324
  18. NYSTATIN. [Concomitant]
     Active Substance: NYSTATIN
     Indication: MUCOSITIS MANAGEMENT
     Dosage: SWAB IN MOUTH
     Dates: start: 20170715
  19. CYTARABINE. [Suspect]
     Active Substance: CYTARABINE
     Indication: RECURRENT CANCER
     Route: 042
     Dates: start: 20180430, end: 20180509
  20. ATIVAN [Concomitant]
     Active Substance: LORAZEPAM
     Indication: ANXIOLYTIC THERAPY
     Dosage: PRN
     Route: 048
     Dates: start: 20170715
  21. ACETAMINOPHENE [Concomitant]
     Indication: INFLUENZA LIKE ILLNESS
     Dosage: PRN
     Route: 048
     Dates: start: 20171129
  22. SERTRALINE [Concomitant]
     Active Substance: SERTRALINE HYDROCHLORIDE
     Indication: BEHAVIOURAL THERAPY
     Route: 048
     Dates: start: 20140115, end: 20180114
  23. CASPOFUNGIN [Concomitant]
     Active Substance: CASPOFUNGIN
     Indication: ANTIFUNGAL PROPHYLAXIS
     Route: 042
     Dates: start: 20180112, end: 20180215
  24. CETIRIZINE TABLET [Concomitant]
     Indication: ALLERGY PROPHYLAXIS
     Dosage: PRN
     Route: 048
     Dates: start: 20170215, end: 20180222
  25. CLOXACILIN [Concomitant]
     Route: 048
     Dates: start: 20180417, end: 20180426
  26. ALLOPURINOL. [Concomitant]
     Active Substance: ALLOPURINOL
     Route: 048
     Dates: start: 20180312, end: 20180314
  27. VENETOCLAX. [Suspect]
     Active Substance: VENETOCLAX
     Route: 048
     Dates: start: 20180413, end: 20180424
  28. VENETOCLAX. [Suspect]
     Active Substance: VENETOCLAX
     Route: 048
     Dates: start: 20180425, end: 20180504
  29. PEG3350 (POLYETHYLENE GLYCOL) [Concomitant]
     Indication: CONSTIPATION
     Dosage: PRN
     Route: 048
     Dates: start: 20110815
  30. RANITIDINE. [Concomitant]
     Active Substance: RANITIDINE
     Indication: GASTROOESOPHAGEAL REFLUX PROPHYLAXIS
     Route: 042
     Dates: start: 20180107
  31. CETIRIZINE TABLET [Concomitant]
     Route: 048
     Dates: start: 20180326
  32. NABILONE CAPSULE [Concomitant]
     Indication: PAIN
     Route: 048
     Dates: start: 20180323, end: 20180420
  33. NABILONE CAPSULE [Concomitant]
     Route: 048
     Dates: start: 20180421
  34. VENETOCLAX. [Suspect]
     Active Substance: VENETOCLAX
     Indication: REFRACTORY CANCER
     Dosage: GASTROSTOMY
     Route: 050
     Dates: start: 20171129, end: 20171129
  35. VENETOCLAX. [Suspect]
     Active Substance: VENETOCLAX
     Indication: RECURRENT CANCER
     Dosage: GASTROSTOMY
     Route: 050
     Dates: start: 20171130, end: 20171130
  36. CYTARABINE. [Suspect]
     Active Substance: CYTARABINE
     Indication: REFRACTORY CANCER
  37. CETIRIZINE TABLET [Concomitant]
     Indication: PREMEDICATION
     Dosage: PRN
     Route: 048
     Dates: start: 20180311, end: 20180315
  38. ZINC GLUCONATE [Concomitant]
     Active Substance: ZINC GLUCONATE
     Indication: PROMOTION OF WOUND HEALING
     Route: 048
     Dates: start: 20180413
  39. RANITIDINE. [Concomitant]
     Active Substance: RANITIDINE
     Indication: ANTACID THERAPY
     Route: 048
     Dates: start: 20180315
  40. VENETOCLAX. [Suspect]
     Active Substance: VENETOCLAX
     Dosage: GASTROSTOMY
     Route: 050
     Dates: start: 20171201, end: 20180103
  41. VITAMIN D [Concomitant]
     Active Substance: CHOLECALCIFEROL
     Indication: VITAMIN SUPPLEMENTATION
     Route: 048
     Dates: start: 20140115
  42. PENTAMIDINE [Concomitant]
     Active Substance: PENTAMIDINE
     Indication: INFECTION PROPHYLAXIS
     Route: 042
     Dates: start: 20171115
  43. ACETAMINOPHENE [Concomitant]
     Indication: PREMEDICATION
  44. BENADRYL [Concomitant]
     Active Substance: DIPHENHYDRAMINE HYDROCHLORIDE
     Indication: PREMEDICATION
     Dosage: BEFORE TRANSFUSION
     Route: 042
     Dates: start: 20171201
  45. SERTRALINE [Concomitant]
     Active Substance: SERTRALINE HYDROCHLORIDE
     Indication: ANTIDEPRESSANT THERAPY
     Route: 048
     Dates: start: 20180115
  46. LORAZEPAM SUBLINGUAL [Concomitant]
     Indication: PROPHYLAXIS
     Route: 060
     Dates: start: 20180312, end: 20180315
  47. MELATONIN [Concomitant]
     Active Substance: MELATONIN
     Indication: INSOMNIA
     Route: 048
     Dates: start: 20170615
  48. ACETAMINOPHENE [Concomitant]
     Indication: HEADACHE
  49. VANCOMYCINE [Concomitant]
     Active Substance: VANCOMYCIN
     Indication: FEBRILE NEUTROPENIA
     Route: 042
     Dates: start: 20180107
  50. VANCOMYCINE [Concomitant]
     Active Substance: VANCOMYCIN
     Indication: SEPSIS
  51. DOCUSATE SODIUM CAPSULE [Concomitant]
     Indication: CONSTIPATION PROPHYLAXIS
     Route: 048
     Dates: start: 20180312
  52. PIPERACILLIN AND TAZOBACTAM [Concomitant]
     Active Substance: PIPERACILLIN SODIUM\TAZOBACTAM SODIUM
     Indication: FEBRILE NEUTROPENIA
     Route: 042
     Dates: start: 20180312, end: 20180315
  53. CLOXACILIN [Concomitant]
     Route: 048
     Dates: start: 20180324, end: 20180417
  54. ALLOPURINOL. [Concomitant]
     Active Substance: ALLOPURINOL
     Indication: PROPHYLAXIS
     Route: 048
     Dates: start: 20180104, end: 20180108
  55. DEXTROSE 5% + NACL0.9% [Concomitant]
     Indication: PROPHYLAXIS
     Route: 042
     Dates: start: 20171128, end: 20171206

REACTIONS (1)
  - Stoma site infection [Recovered/Resolved]

NARRATIVE: CASE EVENT DATE: 20180428
